FAERS Safety Report 7397157-X (Version None)
Quarter: 2011Q2

REPORT INFORMATION
  Report Type: 
  Country: None (occurrence: None)
  Receive Date: 20110406
  Receipt Date: 20110328
  Transmission Date: 20111010
  Serious: Yes (Other)
  Sender: FDA-Public Use
  Company Number: B0709571A

PATIENT

DRUGS (2)
  1. REQUIP [Suspect]
     Indication: PARKINSON'S DISEASE
     Route: 065
  2. REQUIP [Suspect]
     Indication: PARKINSON'S DISEASE
     Route: 065

REACTIONS (9)
  - HALLUCINATION [None]
  - PERSECUTORY DELUSION [None]
  - SUICIDE ATTEMPT [None]
  - AGGRESSION [None]
  - PATHOLOGICAL GAMBLING [None]
  - APATHY [None]
  - PSYCHOMOTOR HYPERACTIVITY [None]
  - HYPERSEXUALITY [None]
  - INTENTIONAL SELF-INJURY [None]
